FAERS Safety Report 12629561 (Version 1)
Quarter: 2016Q3

REPORT INFORMATION
  Report Type: Report from Study
  Country: FR (occurrence: FR)
  Receive Date: 20160808
  Receipt Date: 20160808
  Transmission Date: 20161109
  Serious: Yes (Hospitalization)
  Sender: FDA-Public Use
  Company Number: FR-PFIZER INC-2016363945

PATIENT
  Age: 86 Year
  Sex: Female
  Weight: 39 kg

DRUGS (2)
  1. FASLODEX [Concomitant]
     Active Substance: FULVESTRANT
  2. PALBOCICLIB [Suspect]
     Active Substance: PALBOCICLIB
     Indication: BREAST CANCER
     Dosage: 125 MG, DAILY
     Dates: start: 20160519, end: 20160617

REACTIONS (1)
  - Pneumonia pseudomonal [Recovered/Resolved]

NARRATIVE: CASE EVENT DATE: 20160617
